FAERS Safety Report 7540105-X (Version None)
Quarter: 2011Q2

REPORT INFORMATION
  Report Type: 
  Country: None (occurrence: None)
  Receive Date: 20110603
  Receipt Date: 20110602
  Transmission Date: 20111010
  Serious: No
  Sender: FDA-Public Use
  Company Number: SP03627

PATIENT
  Age: 47 Year
  Sex: Female
  Weight: 73.9363 kg

DRUGS (8)
  1. KEPPRA XR [Concomitant]
  2. XIFAXAN [Suspect]
     Indication: IRRITABLE BOWEL SYNDROME
     Dosage: 550 MG (550 MG, 3 IN 1 D), ORAL
     Route: 048
  3. ASPIRIN [Concomitant]
  4. MIRALAX [Concomitant]
  5. CALCIUM CARBONATE [Concomitant]
  6. PROTONIX [Concomitant]
  7. VITAMIN B-12 [Concomitant]
  8. MAGNESIUM [Concomitant]

REACTIONS (8)
  - ABDOMINAL PAIN UPPER [None]
  - DYSPHAGIA [None]
  - DEHYDRATION [None]
  - RETCHING [None]
  - VOMITING [None]
  - HIATUS HERNIA [None]
  - GASTROINTESTINAL HAEMORRHAGE [None]
  - CANDIDIASIS [None]
